FAERS Safety Report 5347887-6 (Version None)
Quarter: 2007Q2

REPORT INFORMATION
  Report Type: 
  Country: None (occurrence: None)
  Receive Date: 20070514
  Receipt Date: 20060807
  Transmission Date: 20071010
  Serious: No
  Sender: FDA-Public Use
  Company Number: AE-806-255

PATIENT
  Age: 46 Year
  Sex: Female

DRUGS (6)
  1. LIDODERM [Suspect]
     Indication: ARTHRALGIA
     Dosage: 1 PATCH A DAY
  2. CELEBREX [Concomitant]
  3. LEXAPRO [Concomitant]
  4. NORVASC [Concomitant]
  5. ACIPHEX [Concomitant]
  6. TYLENOL [Concomitant]

REACTIONS (2)
  - APPLICATION SITE IRRITATION [None]
  - APPLICATION SITE NECROSIS [None]
